FAERS Safety Report 17661885 (Version 5)
Quarter: 2020Q2

REPORT INFORMATION
  Report Type: Report from Study
  Country: US (occurrence: US)
  Receive Date: 20200413
  Receipt Date: 20200618
  Transmission Date: 20200713
  Serious: Yes (Life-Threatening, Hospitalization, Other)
  Sender: FDA-Public Use
  Company Number: US-SA-2020SA085682

PATIENT

DRUGS (52)
  1. FUROSEMIDE. [Concomitant]
     Active Substance: FUROSEMIDE
     Dosage: 60 MG, QD
     Route: 042
     Dates: start: 20200322, end: 20200322
  2. AZITROMYCIN [Concomitant]
     Active Substance: AZITHROMYCIN ANHYDROUS
     Indication: PNEUMONIA
     Dosage: 500 MG, QD
     Route: 042
     Dates: start: 20200319, end: 20200322
  3. DIPHENHYDRAMINE. [Concomitant]
     Active Substance: DIPHENHYDRAMINE
     Dosage: 25 MG, 1X
     Route: 042
     Dates: start: 20200324, end: 20200324
  4. MIDAZOLAM. [Concomitant]
     Active Substance: MIDAZOLAM
     Indication: SEDATION
     Dosage: 2 G, 1X
     Route: 042
     Dates: start: 20200323, end: 20200323
  5. SODIUM BICARBONATE. [Concomitant]
     Active Substance: SODIUM BICARBONATE
     Dosage: 650 MG, Q12H
     Dates: start: 20200404
  6. ATORVASTIN [Concomitant]
     Active Substance: ATORVASTATIN
     Indication: HYPERCHOLESTEROLAEMIA
     Dosage: 80 MG, QD
     Dates: start: 20200328, end: 20200403
  7. LOSARTAN. [Concomitant]
     Active Substance: LOSARTAN
     Indication: HYPERTENSION
     Dosage: 25 MG, QD
     Dates: start: 20200323
  8. ACETAMINOPHEN. [Concomitant]
     Active Substance: ACETAMINOPHEN
     Route: 048
     Dates: start: 20200318
  9. HEPARIN [Concomitant]
     Active Substance: HEPARIN SODIUM
     Indication: DEEP VEIN THROMBOSIS
     Dosage: 5000 U, TID
     Route: 058
     Dates: start: 20200330, end: 20200404
  10. HEPARIN [Concomitant]
     Active Substance: HEPARIN SODIUM
     Dosage: 5000 U
     Dates: start: 20200404
  11. CALCIUM GLUCONATE. [Concomitant]
     Active Substance: CALCIUM GLUCONATE
     Indication: HYPOCALCAEMIA
  12. MAGNESIUM SULFATE. [Concomitant]
     Active Substance: MAGNESIUM SULFATE
     Indication: PROPHYLAXIS
     Dosage: 1 G, 1X
     Route: 042
     Dates: start: 20200322, end: 20200322
  13. FAMOTIDINE. [Concomitant]
     Active Substance: FAMOTIDINE
     Indication: COVID-19 PNEUMONIA
     Dosage: 20 MG, QD
     Route: 042
     Dates: start: 20200402, end: 20200406
  14. PANTOPRAZOLE [Concomitant]
     Active Substance: PANTOPRAZOLE
     Indication: PROPHYLAXIS
  15. SARILUMAB [Suspect]
     Active Substance: SARILUMAB
     Indication: COVID-19
     Dosage: 200 MG, 1X
     Route: 042
     Dates: start: 20200321, end: 20200321
  16. NOREPINEPHRINE. [Concomitant]
     Active Substance: NOREPINEPHRINE
     Indication: PNEUMONIA
     Dosage: 32 MG, CONTINUOUS INFUSION
     Route: 042
     Dates: start: 20200322
  17. METHYLPREDNISOLONE. [Concomitant]
     Active Substance: METHYLPREDNISOLONE
     Dosage: 500 MG
     Dates: start: 20200420, end: 20200424
  18. MIDAZOLAM. [Concomitant]
     Active Substance: MIDAZOLAM
     Dosage: 4 MG, ONCE
     Dates: start: 20200403, end: 20200403
  19. POLYETHYLENE GLYCOL [Concomitant]
     Active Substance: POLYETHYLENE GLYCOLS
     Indication: DIARRHOEA
  20. PANTOPRAZOLE [Concomitant]
     Active Substance: PANTOPRAZOLE
     Indication: PROPHYLAXIS
     Dosage: 40 MG, QD
     Dates: start: 20200331, end: 20200402
  21. METHYLPREDNISOLONE. [Concomitant]
     Active Substance: METHYLPREDNISOLONE
     Dosage: 60 MG, Q12H
     Dates: start: 20200404, end: 20200407
  22. VANCOMYCIN [Concomitant]
     Active Substance: VANCOMYCIN
     Indication: PNEUMONIA VIRAL
     Dosage: 1000 MG, TID
     Route: 042
     Dates: start: 20200324, end: 20200401
  23. MEROPENEM. [Concomitant]
     Active Substance: MEROPENEM
     Indication: COVID-19 PNEUMONIA
     Dosage: 1000 MG, Q8H
     Route: 058
     Dates: start: 20200331, end: 20200404
  24. ASPIRIN [ACETYLSALICYLIC ACID] [Concomitant]
     Active Substance: ASPIRIN
     Indication: CORONARY ARTERY DISEASE
     Dosage: 81 MG, QD
     Route: 048
     Dates: start: 20200330, end: 20200417
  25. CASPOFUNGIN [Concomitant]
     Active Substance: CASPOFUNGIN
     Indication: FUNGAEMIA
  26. CALCIUM GLUCONATE. [Concomitant]
     Active Substance: CALCIUM GLUCONATE
     Indication: HYPOCALCAEMIA
     Dosage: 2 G, 1X
     Route: 042
     Dates: start: 20200322, end: 20200322
  27. CISATRACURIUM. [Concomitant]
     Active Substance: CISATRACURIUM
     Indication: SEDATION
     Dosage: 10 MG, SINGLE
     Route: 042
     Dates: start: 20200323, end: 20200324
  28. FENTANYL. [Concomitant]
     Active Substance: FENTANYL
     Indication: SEDATION
     Dosage: 100 UG, 1X
     Route: 042
     Dates: start: 20200323, end: 20200323
  29. METHYLPREDNISOLONE. [Concomitant]
     Active Substance: METHYLPREDNISOLONE
     Dosage: 45 MG, Q12H
     Dates: start: 20200417, end: 20200417
  30. HYDROXYCHLOROQUINE [Concomitant]
     Active Substance: HYDROXYCHLOROQUINE
     Indication: VIRAL TEST
     Route: 065
  31. HYDROXYCHLOROQUINE [Concomitant]
     Active Substance: HYDROXYCHLOROQUINE
     Indication: AUTOIMMUNE DISORDER
  32. DEXMEDETOMIDINE. [Concomitant]
     Active Substance: DEXMEDETOMIDINE
     Indication: SEDATION
     Dosage: 200 UG
     Dates: start: 20200401, end: 20200415
  33. FUROSEMIDE. [Concomitant]
     Active Substance: FUROSEMIDE
     Indication: FLUID OVERLOAD
     Dosage: 20 MG, QD
     Route: 042
     Dates: start: 20200319
  34. CHLOROQUINE. [Concomitant]
     Active Substance: CHLOROQUINE
     Indication: COVID-19
     Dosage: 500 MG, QID
     Route: 048
     Dates: start: 20200319, end: 20200324
  35. FLUTICASONE. [Concomitant]
     Active Substance: FLUTICASONE
     Indication: ASTHMA
     Dosage: 50 INHALATIONS, BID
     Route: 055
     Dates: start: 20200319, end: 20200319
  36. FENTANYL. [Concomitant]
     Active Substance: FENTANYL
     Dosage: 100 UG, 1X
     Dates: start: 20200403, end: 20200403
  37. CEFEPIME [Concomitant]
     Active Substance: CEFEPIME HYDROCHLORIDE
     Indication: CORONAVIRUS INFECTION
     Dosage: 1000 MG, IN DEXTROSE 5% 50ML, INFUSE OVER 30  MINUTES EVERY
     Route: 042
     Dates: start: 20200324, end: 20200401
  38. SENNA [SENNA ALEXANDRINA] [Concomitant]
     Active Substance: SENNA LEAF
     Indication: DIARRHOEA
     Dosage: 10 ML, QD
     Route: 048
     Dates: start: 20200331, end: 20200407
  39. CASPOFUNGIN [Concomitant]
     Active Substance: CASPOFUNGIN
     Indication: FUNGAEMIA
     Dosage: UNK
     Dates: start: 20200506
  40. ACETAMINOPHEN. [Concomitant]
     Active Substance: ACETAMINOPHEN
     Indication: PYREXIA
     Dosage: 625 MG, PRN
     Route: 048
     Dates: start: 20200318
  41. ASCORBIC ACID. [Concomitant]
     Active Substance: ASCORBIC ACID
     Indication: COVID-19
     Dosage: 1500 MG, QID
     Route: 042
     Dates: start: 20200319
  42. CISATRACURIUM. [Concomitant]
     Active Substance: CISATRACURIUM
     Dosage: 25 MG, SINGLE
     Dates: start: 20200324, end: 20200324
  43. METHYLPREDNISOLONE. [Concomitant]
     Active Substance: METHYLPREDNISOLONE
     Indication: PNEUMONIA
     Dosage: 125 MG, 1X (2 MG, SINGLE)
     Route: 042
     Dates: start: 20200325, end: 20200325
  44. SODIUM BICARBONATE. [Concomitant]
     Active Substance: SODIUM BICARBONATE
     Indication: PNEUMONIA
     Dosage: 50 MEQ, 1X,SINGLE
     Route: 042
     Dates: start: 20200324, end: 20200324
  45. KETAMINE [Concomitant]
     Active Substance: KETAMINE
     Indication: SEDATION
     Dosage: 2000 MG, CONTINUOUS INFUSION, INFUSE AT 18.4 ML/HR
     Route: 042
     Dates: start: 20200324
  46. ATORVASTIN [Concomitant]
     Active Substance: ATORVASTATIN
     Indication: HYPERCHOLESTEROLAEMIA
  47. ACETAMINOPHEN. [Concomitant]
     Active Substance: ACETAMINOPHEN
     Dosage: 1000 MG, PRN
     Route: 048
     Dates: start: 20200320
  48. PHENYLEPHRINE [Concomitant]
     Active Substance: PHENYLEPHRINE HYDROCHLORIDE
     Indication: PNEUMONIA
     Dosage: 160 MG, CONTINUOUS INFUSION (2 G, SINGLE)
     Route: 042
     Dates: start: 20200319
  49. PHENYLEPHRINE [Concomitant]
     Active Substance: PHENYLEPHRINE HYDROCHLORIDE
     Dosage: 3160 MG, CONTINUOUS INFUSION
     Route: 042
     Dates: start: 20200322
  50. POLYETHYLENE GLYCOL [Concomitant]
     Active Substance: POLYETHYLENE GLYCOLS
     Indication: DIARRHOEA
     Dosage: 17 G, Q12H
     Dates: start: 20200331
  51. PREDNISONE. [Concomitant]
     Active Substance: PREDNISONE
     Indication: PNEUMONIA
     Dosage: UNK
     Dates: start: 20200505, end: 20200507
  52. LEVOFLOXACINE [LEVOFLOXACIN] [Concomitant]
     Active Substance: LEVOFLOXACIN
     Indication: PYREXIA
     Dosage: 750 MG, QD
     Route: 042
     Dates: start: 20200502

REACTIONS (4)
  - Pulmonary embolism [Not Recovered/Not Resolved]
  - Liver function test abnormal [Not Recovered/Not Resolved]
  - Encephalopathy [Unknown]
  - Acute kidney injury [Recovered/Resolved]

NARRATIVE: CASE EVENT DATE: 20200322
